FAERS Safety Report 8483913-3 (Version None)
Quarter: 2012Q2

REPORT INFORMATION
  Report Type: 
  Country: None (occurrence: None)
  Receive Date: 20120627
  Receipt Date: 20120627
  Transmission Date: 20120825
  Serious: Yes (Hospitalization)
  Sender: FDA-Public Use
  Company Number: None

PATIENT
  Sex: Male

DRUGS (1)
  1. RIBAPAK 600MG KADMON [Suspect]
     Indication: HEPATITIS C
     Dosage: 600MG AM AND PM PO
     Route: 048

REACTIONS (5)
  - IMPAIRED WORK ABILITY [None]
  - HEART RATE IRREGULAR [None]
  - PRURITUS [None]
  - RESTLESSNESS [None]
  - ASTHENIA [None]
